FAERS Safety Report 7578196-2 (Version None)
Quarter: 2011Q2

REPORT INFORMATION
  Report Type: 
  Country: None (occurrence: None)
  Receive Date: 20110628
  Receipt Date: 20110607
  Transmission Date: 20111010
  Serious: Yes (Hospitalization)
  Sender: FDA-Public Use
  Company Number: A0933239A

PATIENT
  Sex: Male
  Weight: 115.9 kg

DRUGS (4)
  1. GLUCOVANCE [Concomitant]
  2. AVANDARYL [Suspect]
     Route: 048
     Dates: start: 20060202
  3. AVANDIA [Suspect]
     Dosage: 8MG PER DAY
     Route: 048
     Dates: end: 20060101
  4. ZOCOR [Concomitant]

REACTIONS (2)
  - CEREBRAL INFARCTION [None]
  - CEREBROVASCULAR ACCIDENT [None]
